FAERS Safety Report 16920427 (Version 5)
Quarter: 2022Q2

REPORT INFORMATION
  Report Type: Report from Study
  Country: DE (occurrence: None)
  Receive Date: 20191015
  Receipt Date: 20220406
  Transmission Date: 20220721
  Serious: Yes (Life-Threatening, Hospitalization)
  Sender: FDA-Public Use
  Company Number: DE-ROCHE-2293464

PATIENT
  Age: 35 Year
  Sex: Male
  Weight: 78 kg

DRUGS (14)
  1. OCRELIZUMAB [Suspect]
     Active Substance: OCRELIZUMAB
     Indication: Relapsing-remitting multiple sclerosis
     Dosage: ADMINISTERED AS TWO 300MG INFUSIONS ON DAYS 1 AND 15, FOLLOWED BY ONE 600-MG INFUSION DOSE EVERY 24
     Route: 042
     Dates: start: 20180308
  2. METHYLPREDNISOLONE [Suspect]
     Active Substance: METHYLPREDNISOLONE
     Indication: Premedication
     Dosage: SUBSEQUENT DOSES RECEIVED ON 22/MAR/2018, 23/AUG/2018, 14/MAR/2019, 06/SEP/2019, 10/FEB/2020, 03/AUG
     Route: 042
     Dates: start: 20180308
  3. RANITIDINE HYDROCHLORIDE [Concomitant]
     Active Substance: RANITIDINE HYDROCHLORIDE
     Indication: Premedication
     Dosage: SUBSEQUENT DOSES RECEIVED ON 22/MAR/2018, 23/AUG/2018 AND 14/MAR/2019
     Route: 042
     Dates: start: 20180308
  4. CLEMASTINE FUMARATE [Concomitant]
     Active Substance: CLEMASTINE FUMARATE
     Indication: Premedication
     Dosage: SUBSEQUENT DOSES RECEIVED ON 22/MAR/2018, 23/AUG/2018 AND 14/MAR/2019, 12/JAN/2021, 12/AUG/2021
     Route: 042
  5. ACETAMINOPHEN [Concomitant]
     Active Substance: ACETAMINOPHEN
     Indication: Premedication
     Dosage: SUBSEQUENT DOSES RECEIVED ON 22/MAR/2018 (2 TABLETS), 23/AUG/2018 AND 14/MAR/2019, 12/JAN/2021, 12/A
     Route: 048
     Dates: start: 20180308
  6. ACETAMINOPHEN [Concomitant]
     Active Substance: ACETAMINOPHEN
     Dosage: (2 TABLETS)
     Route: 048
     Dates: start: 20180322
  7. ACETAMINOPHEN [Concomitant]
     Active Substance: ACETAMINOPHEN
     Route: 048
     Dates: start: 20180823
  8. ACETAMINOPHEN [Concomitant]
     Active Substance: ACETAMINOPHEN
     Route: 048
     Dates: start: 20190314
  9. BACLOFEN [Concomitant]
     Active Substance: BACLOFEN
     Route: 048
  10. IBUPROFEN [Concomitant]
     Active Substance: IBUPROFEN
     Indication: Headache
     Route: 048
     Dates: start: 20190906
  11. ESCITALOPRAM [Concomitant]
     Active Substance: ESCITALOPRAM OXALATE
     Indication: Depressed mood
     Route: 048
     Dates: start: 20190516
  12. PANTOPRAZOLE [Concomitant]
     Active Substance: PANTOPRAZOLE
     Route: 048
  13. PROMETHAZINE [Concomitant]
     Active Substance: PROMETHAZINE HYDROCHLORIDE
     Indication: Depressed mood
     Route: 048
  14. PFIZER-BIONTECH COVID-19 VACCINE [Concomitant]
     Active Substance: TOZINAMERAN
     Indication: Prophylaxis
     Dosage: NEXT DOSE ON 24/JUN/2021
     Route: 030
     Dates: start: 20210602

REACTIONS (1)
  - Influenza [Recovered/Resolved]

NARRATIVE: CASE EVENT DATE: 20190130
